FAERS Safety Report 10358754 (Version 1)
Quarter: 2014Q3

REPORT INFORMATION
  Report Type: Spontaneous
  Country: RO (occurrence: RO)
  Receive Date: 20140804
  Receipt Date: 20140804
  Transmission Date: 20150326
  Serious: Yes (Other)
  Sender: FDA-Public Use
  Company Number: RO-UCBSA-2014007400

PATIENT

DRUGS (1)
  1. VASAPROSTAN [Suspect]
     Active Substance: ALPROSTADIL
     Indication: PERIPHERAL ARTERIAL OCCLUSIVE DISEASE
     Dosage: 20 ?G, 2X/DAY (BID), 20MCG IN 250 ML OF PHYSIOLOGIC SERUM (BID)
     Route: 042

REACTIONS (4)
  - Hypotension [Unknown]
  - Hyperaemia [Unknown]
  - Rash [Unknown]
  - Headache [Unknown]
